FAERS Safety Report 4322698-9 (Version None)
Quarter: 2004Q1

REPORT INFORMATION
  Report Type: 
  Country: None (occurrence: None)
  Receive Date: 20040318
  Receipt Date: 20030722
  Transmission Date: 20041129
  Serious: Yes (Hospitalization)
  Sender: FDA-Public Use
  Company Number: MK200307-0658-1

PATIENT
  Age: 45 Year
  Sex: Female

DRUGS (1)
  1. OPTIRAY 320 [Suspect]
     Indication: COMPUTERISED TOMOGRAM
     Dosage: 150CC, IV, ONCE
     Route: 042
     Dates: start: 20030714, end: 20030714

REACTIONS (6)
  - COUGH [None]
  - HYPERTENSION [None]
  - PULMONARY OEDEMA [None]
  - TACHYCARDIA [None]
  - THROAT TIGHTNESS [None]
  - WHEEZING [None]
